FAERS Safety Report 13586318 (Version 2)
Quarter: 2017Q3

REPORT INFORMATION
  Report Type: Spontaneous
  Country: GB (occurrence: GB)
  Receive Date: 20170526
  Receipt Date: 20170726
  Transmission Date: 20171127
  Serious: Yes (Hospitalization, Other)
  Sender: FDA-Public Use
  Company Number: GB-PFIZER INC-2014122196

PATIENT
  Age: 20 Year
  Sex: Male
  Weight: 76 kg

DRUGS (13)
  1. METOCLOPRAMIDE. [Concomitant]
     Active Substance: METOCLOPRAMIDE
     Dosage: UNK
  2. ONDANSETRON [Concomitant]
     Active Substance: ONDANSETRON
     Dosage: UNK
  3. FILGRASTIM [Concomitant]
     Active Substance: FILGRASTIM
     Dosage: UNK
  4. CALCIUM LEVOFOLINATE [Concomitant]
     Active Substance: LEVOLEUCOVORIN CALCIUM
     Dosage: UNK
  5. SODIUM BICARBONATE. [Concomitant]
     Active Substance: SODIUM BICARBONATE
     Dosage: UNK
  6. APREPITANT. [Concomitant]
     Active Substance: APREPITANT
     Dosage: UNK
  7. METHOTREXATE SODIUM. [Suspect]
     Active Substance: METHOTREXATE SODIUM
     Indication: OSTEOSARCOMA
     Dosage: 12000 MG/M2 (24 G), UNK
     Route: 042
     Dates: start: 20131202, end: 20140415
  8. DEXAMETHASONE. [Concomitant]
     Active Substance: DEXAMETHASONE
     Dosage: UNK
  9. BAXTER HEALTHCARE SODIUM CHLORIDE [Suspect]
     Active Substance: SODIUM CHLORIDE
     Indication: OSTEOSARCOMA
     Dosage: 260 ML, UNK
     Route: 042
     Dates: start: 20131202
  10. PARACETAMOL [Concomitant]
     Active Substance: ACETAMINOPHEN
     Dosage: UNK
  11. MEPACT [Interacting]
     Active Substance: MIFAMURTIDE
     Indication: OSTEOSARCOMA
     Dosage: 2 MG/M2, (2 X 4 MG IN 1 WEEK)
     Route: 042
     Dates: start: 20140317, end: 20140415
  12. DOXORUBICIN [Concomitant]
     Active Substance: DOXORUBICIN
     Dosage: DURATION: 5 MONTH
  13. CISPLATIN. [Concomitant]
     Active Substance: CISPLATIN
     Indication: OSTEOSARCOMA
     Dosage: 60 MG, UNK
     Route: 042
     Dates: start: 20130801

REACTIONS (6)
  - Potentiating drug interaction [Recovered/Resolved]
  - Blood creatinine increased [Not Recovered/Not Resolved]
  - Medication error [Recovering/Resolving]
  - Chemotherapeutic drug level increased [Recovered/Resolved]
  - Renal impairment [Recovering/Resolving]
  - Drug clearance decreased [Recovered/Resolved]

NARRATIVE: CASE EVENT DATE: 20140416
